FAERS Safety Report 17151466 (Version 1)
Quarter: 2019Q4

REPORT INFORMATION
  Report Type: Spontaneous
  Country: US (occurrence: US)
  Receive Date: 20191212
  Receipt Date: 20191212
  Transmission Date: 20200122
  Serious: Yes (Other)
  Sender: FDA-Public Use
  Company Number: None

PATIENT
  Age: 71 Year
  Sex: Female
  Weight: 66 kg

DRUGS (2)
  1. DENOSUMAB [Suspect]
     Active Substance: DENOSUMAB
     Dosage: ?          OTHER FREQUENCY:Q 6 MONTHS;?
     Route: 058
  2. DENOSUMAB [Concomitant]
     Active Substance: DENOSUMAB
     Dates: start: 20161122, end: 20191212

REACTIONS (1)
  - Lichen planus [None]

NARRATIVE: CASE EVENT DATE: 20190718
